FAERS Safety Report 4895691-5 (Version None)
Quarter: 2005Q4

REPORT INFORMATION
  Report Type: 
  Country: None (occurrence: None)
  Receive Date: 20051220
  Receipt Date: 20051109
  Transmission Date: 20060501
  Serious: Yes (Other)
  Sender: FDA-Public Use
  Company Number: US154891

PATIENT
  Age: 60 Year
  Sex: Female

DRUGS (7)
  1. ENBREL [Suspect]
     Indication: RHEUMATOID ARTHRITIS
     Dosage: 25 MG, 2 IN 1 WEEKS, SC
     Route: 058
     Dates: start: 20000823, end: 20051019
  2. NABUMETONE [Concomitant]
  3. ESOMEPRAZOLE MAGNESIUM [Concomitant]
  4. METHOTREXATE [Concomitant]
  5. FOLIC ACID [Concomitant]
  6. ALENDRONATE SODIUM [Concomitant]
  7. VICODIN [Concomitant]

REACTIONS (1)
  - CONVULSION [None]
